FAERS Safety Report 9380027 (Version 1)
Quarter: 2013Q3

REPORT INFORMATION
  Report Type: Spontaneous
  Country: US (occurrence: US)
  Receive Date: 20130702
  Receipt Date: 20130702
  Transmission Date: 20140515
  Serious: No
  Sender: FDA-Public Use
  Company Number: US-PFIZER INC-2013196059

PATIENT
  Age: 60 Year
  Sex: Female

DRUGS (3)
  1. NEURONTIN [Suspect]
     Dosage: 300 MG, UNK
  2. NEURONTIN [Suspect]
     Dosage: 600 MG, 3X/DAY (300 MG CAPSULES, 2 CAPSULES THREE TIMES A DAY)
  3. NEURONTIN [Suspect]
     Dosage: 800 MG, 3X/DAY (400 MG CAPSULES 2 CAPSULES 3 TIMES A DAY)

REACTIONS (2)
  - Dysarthria [Unknown]
  - Gait disturbance [Unknown]
